FAERS Safety Report 5340091-7 (Version None)
Quarter: 2007Q2

REPORT INFORMATION
  Report Type: 
  Country: None (occurrence: None)
  Receive Date: 20070525
  Receipt Date: 20070525
  Transmission Date: 20071010
  Serious: Yes (Hospitalization)
  Sender: FDA-Public Use
  Company Number: None

PATIENT
  Age: 68 Year
  Sex: Male
  Weight: 88.4 kg

DRUGS (12)
  1. DIGOXIN [Suspect]
     Indication: CARDIAC DISORDER
     Dosage: 0.25 MG DAILY PO
     Route: 048
  2. METOPROLOL SUCCINATE [Concomitant]
  3. NIACIN [Concomitant]
  4. GEMFIBROZIL [Concomitant]
  5. LISINOPRIL [Concomitant]
  6. METFORMIN HCL [Concomitant]
  7. FELODIPINE [Concomitant]
  8. LEVOTHYROXINE SODIUM [Concomitant]
  9. LASIX [Concomitant]
  10. SIMVASTATIN [Concomitant]
  11. INDOCIN [Concomitant]
  12. ASPIRIN [Concomitant]

REACTIONS (7)
  - BRADYCARDIA [None]
  - ELECTROCARDIOGRAM [None]
  - ELECTROCARDIOGRAM ABNORMAL [None]
  - NAUSEA [None]
  - THERAPEUTIC AGENT TOXICITY [None]
  - VISION BLURRED [None]
  - VOMITING [None]
